FAERS Safety Report 9422801 (Version 3)
Quarter: 2013Q3

REPORT INFORMATION
  Report Type: Spontaneous
  Country: US (occurrence: US)
  Receive Date: 20130726
  Receipt Date: 20130918
  Transmission Date: 20140515
  Serious: No
  Sender: FDA-Public Use
  Company Number: US-009507513-1307USA010379

PATIENT
  Sex: 0

DRUGS (2)
  1. COPPERTONE WATER BABIES PURE + SIMPLE LOTION SPF 50 [Suspect]
     Indication: PRODUCT USED FOR UNKNOWN INDICATION
     Dosage: UNK, UNKNOWN
     Route: 061
  2. COPPERTONE WATER BABIES PURE + SIMPLE LOTION SPF 50 [Suspect]
     Dosage: UNK

REACTIONS (1)
  - Application site discolouration [Unknown]
